FAERS Safety Report 6701282-3 (Version None)
Quarter: 2010Q2

REPORT INFORMATION
  Report Type: 
  Country: None (occurrence: None)
  Receive Date: 20100427
  Receipt Date: 20100419
  Transmission Date: 20101027
  Serious: Yes (Hospitalization)
  Sender: FDA-Public Use
  Company Number: JP-2010-0872

PATIENT
  Age: 67 Year
  Sex: Male

DRUGS (5)
  1. NAVELBINE [Suspect]
     Indication: LUNG SQUAMOUS CELL CARCINOMA STAGE UNSPECIFIED
     Dosage: 20 MG/M2; IV
     Route: 042
     Dates: start: 20091127, end: 20100312
  2. DE-766 [Suspect]
     Indication: LUNG SQUAMOUS CELL CARCINOMA STAGE UNSPECIFIED
     Dosage: 200 MG; IV
     Route: 042
     Dates: start: 20091127, end: 20100312
  3. CISPLATIN [Suspect]
     Dosage: 80 MG/M2; IV
  4. MAGLAX [Concomitant]
  5. MYSLEE [Concomitant]

REACTIONS (4)
  - FATIGUE [None]
  - HYPOPHAGIA [None]
  - PYREXIA [None]
  - RADIATION PNEUMONITIS [None]
